FAERS Safety Report 16835254 (Version 3)
Quarter: 2019Q4

REPORT INFORMATION
  Report Type: Spontaneous
  Country: ES (occurrence: ES)
  Receive Date: 20190920
  Receipt Date: 20191101
  Transmission Date: 20200122
  Serious: Yes (Life-Threatening, Other)
  Sender: FDA-Public Use
  Company Number: ES-AMGEN-ESPSP2019154447

PATIENT

DRUGS (5)
  1. PANITUMUMAB [Suspect]
     Active Substance: PANITUMUMAB
     Indication: COLORECTAL CANCER METASTATIC
     Dosage: 6 MILLIGRAM/KILOGRAM (OVER A 60-MIN ON DAY 01 IN 2-WEEK CYCLES)
     Route: 042
  2. 5-FU [FLUOROURACIL] [Suspect]
     Active Substance: FLUOROURACIL
     Indication: COLORECTAL CANCER METASTATIC
     Dosage: 400 MILLIGRAM/SQ. METER (ON DAY 01 IN 2-WEEK CYCLES)
     Route: 040
  3. 5-FU [FLUOROURACIL] [Suspect]
     Active Substance: FLUOROURACIL
     Dosage: 2400 MILLIGRAM/SQ. METER (ON OVER  46 HRS, ON DAY 01 IN 2-WEEK CYCLES)
     Route: 042
  4. IRINOTECAN [Suspect]
     Active Substance: IRINOTECAN
     Indication: COLORECTAL CANCER METASTATIC
     Dosage: 180 MILLIGRAM/SQ. METER (OVER 30 TO 90 MIN ON A DAY 01 IN 2-WEEK CYCLES)
     Route: 042
  5. LEUCOVORIN [FOLINIC ACID] [Suspect]
     Active Substance: LEUCOVORIN
     Indication: COLORECTAL CANCER METASTATIC
     Dosage: 400 MILLIGRAM/SQ. METER (OVER A 120-MIN ON DAY 01 IN 2-WEEK CYCLES)
     Route: 042

REACTIONS (14)
  - Febrile neutropenia [Unknown]
  - Leukopenia [Unknown]
  - Malignant neoplasm progression [Unknown]
  - Neutropenia [Unknown]
  - Enteritis [Unknown]
  - Fatigue [Unknown]
  - Skin toxicity [Unknown]
  - Gastrointestinal disorder [Unknown]
  - Diarrhoea [Unknown]
  - Mucosal inflammation [Unknown]
  - Anaemia [Unknown]
  - Gene mutation [Unknown]
  - Asthenia [Unknown]
  - Hypomagnesaemia [Unknown]
